FAERS Safety Report 8004095-8 (Version None)
Quarter: 2011Q4

REPORT INFORMATION
  Report Type: 
  Country: None (occurrence: None)
  Receive Date: 20111222
  Receipt Date: 20070725
  Transmission Date: 20120403
  Serious: No
  Sender: FDA-Public Use
  Company Number: PHHY2007BR09375

PATIENT
  Sex: Female

DRUGS (3)
  1. VITAMIN B COMPLEX CAP [Concomitant]
  2. TIBOLONE [Concomitant]
     Dosage: 1 DF, QD
  3. ZELMAC [Suspect]

REACTIONS (1)
  - INTESTINAL OBSTRUCTION [None]
